FAERS Safety Report 6690299-3 (Version None)
Quarter: 2010Q2

REPORT INFORMATION
  Report Type: 
  Country: None (occurrence: None)
  Receive Date: 20100421
  Receipt Date: 20100318
  Transmission Date: 20101027
  Serious: Yes (Life-Threatening, Hospitalization, Other)
  Sender: FDA-Public Use
  Company Number: PHHY2010US24399

PATIENT
  Age: 5 Year
  Sex: Male

DRUGS (1)
  1. ELIDEL [Suspect]
     Indication: ECZEMA
     Dosage: ALMOST DAILY
     Route: 061
     Dates: start: 20020301, end: 20040301

REACTIONS (5)
  - ACUTE LYMPHOCYTIC LEUKAEMIA [None]
  - BENIGN SPLEEN TUMOUR [None]
  - BONE NEOPLASM [None]
  - NEOPLASM [None]
  - RENAL NEOPLASM [None]
